FAERS Safety Report 16300965 (Version 2)
Quarter: 2020Q4

REPORT INFORMATION
  Report Type: Spontaneous
  Country: US (occurrence: US)
  Receive Date: 20190510
  Receipt Date: 20201225
  Transmission Date: 20210113
  Serious: Yes (Hospitalization, Other)
  Sender: FDA-Public Use
  Company Number: US-ASTRAZENECA-2019SE65753

PATIENT
  Age: 17150 Day
  Sex: Female
  Weight: 126.6 kg

DRUGS (99)
  1. PRILOSEC [Suspect]
     Active Substance: OMEPRAZOLE MAGNESIUM
     Indication: GASTROOESOPHAGEAL REFLUX DISEASE
     Route: 048
     Dates: start: 201001, end: 201312
  2. TMP/SMZ [Concomitant]
     Indication: INFECTION
     Dates: start: 200907, end: 200907
  3. TMP/SMZ [Concomitant]
     Indication: INFECTION
     Dates: start: 201301, end: 201301
  4. DOXYCYCLINE. [Concomitant]
     Active Substance: DOXYCYCLINE
     Indication: INFECTION
     Dates: start: 201605, end: 201605
  5. INDOMETHACIN. [Concomitant]
     Active Substance: INDOMETHACIN
     Indication: PAIN
     Dates: start: 201306, end: 201307
  6. SIMVASTATIN. [Concomitant]
     Active Substance: SIMVASTATIN
     Indication: BLOOD CHOLESTEROL INCREASED
     Dates: start: 201307, end: 201405
  7. LEVOFLOXACIN. [Concomitant]
     Active Substance: LEVOFLOXACIN
     Indication: INFECTION
     Dates: start: 201402, end: 201402
  8. LOSARTAN. [Concomitant]
     Active Substance: LOSARTAN
     Indication: HYPERTENSION
     Dates: start: 201503, end: 201509
  9. NOVOLOG [Concomitant]
     Active Substance: INSULIN ASPART
  10. GABAPENTIN. [Concomitant]
     Active Substance: GABAPENTIN
  11. CLINDAMYCIN. [Concomitant]
     Active Substance: CLINDAMYCIN
  12. AMOX/CLAVULA [Concomitant]
  13. FLUCONAZOLE. [Concomitant]
     Active Substance: FLUCONAZOLE
  14. BRILINTA [Concomitant]
     Active Substance: TICAGRELOR
  15. FENOFIBRATE. [Concomitant]
     Active Substance: FENOFIBRATE
  16. BACLOFEN. [Concomitant]
     Active Substance: BACLOFEN
  17. RELION [Concomitant]
  18. HEPARIN SODIUM. [Concomitant]
     Active Substance: HEPARIN SODIUM
  19. SALINE FLUSH [Concomitant]
     Active Substance: SODIUM CHLORIDE
  20. PRILOSEC [Suspect]
     Active Substance: OMEPRAZOLE MAGNESIUM
     Indication: GASTROOESOPHAGEAL REFLUX DISEASE
     Route: 048
     Dates: start: 201311, end: 2018
  21. PRILOSEC OTC [Suspect]
     Active Substance: OMEPRAZOLE MAGNESIUM
     Indication: GASTROOESOPHAGEAL REFLUX DISEASE
     Route: 048
     Dates: start: 201001, end: 201312
  22. PRILOSEC OTC [Suspect]
     Active Substance: OMEPRAZOLE MAGNESIUM
     Indication: GASTROOESOPHAGEAL REFLUX DISEASE
     Route: 048
     Dates: start: 201311
  23. TMP/SMZ [Concomitant]
     Indication: INFECTION
     Dates: start: 201304, end: 201304
  24. TMP/SMZ [Concomitant]
     Indication: INFECTION
     Dates: start: 201601, end: 201601
  25. DOXYCYCLINE. [Concomitant]
     Active Substance: DOXYCYCLINE
     Indication: INFECTION
     Dates: start: 201402, end: 201402
  26. DOXYCYCLINE. [Concomitant]
     Active Substance: DOXYCYCLINE
     Indication: INFECTION
     Dates: start: 201410, end: 201410
  27. FUROSEMIDE. [Concomitant]
     Active Substance: FUROSEMIDE
     Indication: CARDIAC DISORDER
     Dates: start: 200410, end: 200410
  28. NOVOLIN NOS [Concomitant]
     Active Substance: INSULIN HUMAN
  29. NITROFUR [Concomitant]
     Active Substance: NITROFURANTOIN
  30. LEVEMIR [Concomitant]
     Active Substance: INSULIN DETEMIR
  31. METHOCARBAM [Concomitant]
     Active Substance: METHOCARBAMOL
  32. ALLOPURINOL. [Concomitant]
     Active Substance: ALLOPURINOL
  33. METHYLPREDNISONE [Concomitant]
     Active Substance: METHYLPREDNISOLONE
  34. SILVER SULFA CRE [Concomitant]
  35. ENDOCET [Concomitant]
     Active Substance: ACETAMINOPHEN\OXYCODONE HYDROCHLORIDE
  36. VITAMIN D2 [Concomitant]
     Active Substance: ERGOCALCIFEROL
  37. GLYBURIDE. [Concomitant]
     Active Substance: GLYBURIDE
  38. MAGNESIUM OXIDE. [Concomitant]
     Active Substance: MAGNESIUM OXIDE
  39. PRILOSEC [Suspect]
     Active Substance: OMEPRAZOLE MAGNESIUM
     Indication: GASTROOESOPHAGEAL REFLUX DISEASE
     Route: 048
     Dates: start: 201001, end: 201312
  40. PRILOSEC [Suspect]
     Active Substance: OMEPRAZOLE MAGNESIUM
     Indication: GASTROOESOPHAGEAL REFLUX DISEASE
     Route: 048
     Dates: start: 201311, end: 2018
  41. AMITRIPTYLINE [Concomitant]
     Active Substance: AMITRIPTYLINE
     Indication: PAIN
     Dates: start: 201301, end: 201301
  42. FUROSEMIDE. [Concomitant]
     Active Substance: FUROSEMIDE
     Indication: CARDIAC DISORDER
     Dates: start: 201304, end: 201306
  43. ZOLPIDEM [Concomitant]
     Active Substance: ZOLPIDEM TARTRATE
  44. DILTIAZEM. [Concomitant]
     Active Substance: DILTIAZEM
  45. KLOR-CON [Concomitant]
     Active Substance: POTASSIUM CHLORIDE
  46. EFFIENT [Concomitant]
     Active Substance: PRASUGREL HYDROCHLORIDE
  47. ASPIRIN. [Concomitant]
     Active Substance: ASPIRIN
  48. NAPROXEN. [Concomitant]
     Active Substance: NAPROXEN
     Indication: PAIN
     Dates: start: 200711, end: 200711
  49. AMITRIPTYLINE [Concomitant]
     Active Substance: AMITRIPTYLINE
     Indication: PAIN
     Dates: start: 201901, end: 201901
  50. DOXYCYCLINE. [Concomitant]
     Active Substance: DOXYCYCLINE
     Indication: INFECTION
     Dates: start: 201310, end: 201310
  51. LEVOFLOXACIN. [Concomitant]
     Active Substance: LEVOFLOXACIN
     Indication: INFECTION
     Dates: start: 201310, end: 201310
  52. LANTUS [Concomitant]
     Active Substance: INSULIN GLARGINE
  53. COLLAGENASE SANTYL [Concomitant]
     Active Substance: COLLAGENASE CLOSTRIDIUM HISTOLYTICUM
  54. TRAZODONE [Concomitant]
     Active Substance: TRAZODONE HYDROCHLORIDE
  55. PRILOSEC [Suspect]
     Active Substance: OMEPRAZOLE MAGNESIUM
     Indication: GASTROOESOPHAGEAL REFLUX DISEASE
     Dosage: GENERIC
     Route: 065
     Dates: start: 20140517
  56. LISINOPRIL. [Concomitant]
     Active Substance: LISINOPRIL
     Indication: HYPERTENSION
     Dates: start: 201211, end: 201305
  57. AMITRIPTYLINE [Concomitant]
     Active Substance: AMITRIPTYLINE
     Indication: PAIN
     Dates: start: 201211, end: 201211
  58. LIPITOR [Concomitant]
     Active Substance: ATORVASTATIN CALCIUM
     Indication: BLOOD CHOLESTEROL INCREASED
     Dates: start: 200708, end: 200801
  59. FUROSEMIDE. [Concomitant]
     Active Substance: FUROSEMIDE
     Indication: CARDIAC DISORDER
     Dates: start: 201502, end: 201906
  60. ALPRAZOLAM. [Concomitant]
     Active Substance: ALPRAZOLAM
  61. HUMULIN NOS [Concomitant]
     Active Substance: INSULIN HUMAN
  62. COLCRYS [Concomitant]
     Active Substance: COLCHICINE
  63. DAPTOMYCIN. [Concomitant]
     Active Substance: DAPTOMYCIN
  64. PRILOSEC [Suspect]
     Active Substance: OMEPRAZOLE MAGNESIUM
     Indication: GASTROOESOPHAGEAL REFLUX DISEASE
     Dosage: GENERIC
     Route: 065
     Dates: start: 20140517
  65. LISINOPRIL. [Concomitant]
     Active Substance: LISINOPRIL
     Indication: HYPERTENSION
     Dates: start: 201311, end: 2014
  66. AMITRIPTYLINE [Concomitant]
     Active Substance: AMITRIPTYLINE
     Indication: PAIN
     Dates: start: 200504, end: 200603
  67. TMP/SMZ [Concomitant]
     Indication: INFECTION
     Dates: start: 201405, end: 201405
  68. DOXYCYCLINE. [Concomitant]
     Active Substance: DOXYCYCLINE
     Indication: INFECTION
     Dates: start: 201610, end: 201610
  69. DOXYCYCLINE. [Concomitant]
     Active Substance: DOXYCYCLINE
     Indication: INFECTION
     Dates: start: 201701, end: 201702
  70. CIPROFLOXACIN. [Concomitant]
     Active Substance: CIPROFLOXACIN
     Indication: INFECTION
     Dates: start: 201603, end: 201604
  71. HYDROCHLOROT [Concomitant]
     Active Substance: HYDROCHLOROTHIAZIDE
  72. CLOPIDOGREL [Concomitant]
     Active Substance: CLOPIDOGREL BISULFATE
  73. CARTIA [Concomitant]
  74. NABUMETONE. [Concomitant]
     Active Substance: NABUMETONE
  75. ADVICOR [Concomitant]
     Active Substance: LOVASTATIN\NIACIN
  76. NAPROXEN. [Concomitant]
     Active Substance: NAPROXEN
     Indication: PAIN
     Dates: start: 200311, end: 200311
  77. DOXYCYCLINE. [Concomitant]
     Active Substance: DOXYCYCLINE
     Indication: INFECTION
     Dates: start: 201303, end: 201303
  78. FUROSEMIDE. [Concomitant]
     Active Substance: FUROSEMIDE
     Indication: CARDIAC DISORDER
     Dates: start: 200903, end: 200903
  79. CIPROFLOXACIN. [Concomitant]
     Active Substance: CIPROFLOXACIN
     Indication: INFECTION
     Dates: start: 200907, end: 200907
  80. CIPROFLOXACIN. [Concomitant]
     Active Substance: CIPROFLOXACIN
     Indication: INFECTION
     Dates: start: 201710, end: 201711
  81. BESIVANCE [Concomitant]
     Active Substance: BESIFLOXACIN
  82. ONDANSETRON [Concomitant]
     Active Substance: ONDANSETRON
  83. METOPROLOL. [Concomitant]
     Active Substance: METOPROLOL
  84. CITALOPRAM [Concomitant]
     Active Substance: CITALOPRAM HYDROBROMIDE
  85. MEPERIDINE [Concomitant]
     Active Substance: MEPERIDINE
  86. LATANOPROST. [Concomitant]
     Active Substance: LATANOPROST
  87. NITROGLYCERIN. [Concomitant]
     Active Substance: NITROGLYCERIN
  88. ATENOLOL. [Concomitant]
     Active Substance: ATENOLOL
  89. VYTORIN [Concomitant]
     Active Substance: EZETIMIBE\SIMVASTATIN
  90. PREDNISOLONE ACETATE. [Concomitant]
     Active Substance: PREDNISOLONE ACETATE
  91. PRILOSEC OTC [Suspect]
     Active Substance: OMEPRAZOLE MAGNESIUM
     Indication: GASTROOESOPHAGEAL REFLUX DISEASE
     Route: 048
     Dates: start: 201001, end: 201312
  92. PRILOSEC OTC [Suspect]
     Active Substance: OMEPRAZOLE MAGNESIUM
     Indication: GASTROOESOPHAGEAL REFLUX DISEASE
     Route: 048
     Dates: start: 201311
  93. MELOXICAM. [Concomitant]
     Active Substance: MELOXICAM
     Indication: PAIN
     Dates: start: 201211, end: 201211
  94. LISINOPRIL. [Concomitant]
     Active Substance: LISINOPRIL
     Indication: HYPERTENSION
     Dates: start: 200411, end: 200811
  95. HYDRALAZINE [Concomitant]
     Active Substance: HYDRALAZINE HYDROCHLORIDE
     Indication: HYPERTENSION
     Dates: start: 201610, end: 201906
  96. DOXAZOSIN [Concomitant]
     Active Substance: DOXAZOSIN MESYLATE
  97. VICTOZA [Concomitant]
     Active Substance: LIRAGLUTIDE
  98. PROMETHAZINE [Concomitant]
     Active Substance: PROMETHAZINE HYDROCHLORIDE
  99. METOPROLOL TARTRATE. [Concomitant]
     Active Substance: METOPROLOL TARTRATE

REACTIONS (3)
  - Chronic kidney disease [Not Recovered/Not Resolved]
  - Nephrogenic anaemia [Unknown]
  - Acute kidney injury [Unknown]

NARRATIVE: CASE EVENT DATE: 20150407
